FAERS Safety Report 7985181-5 (Version None)
Quarter: 2011Q4

REPORT INFORMATION
  Report Type: 
  Country: None (occurrence: None)
  Receive Date: 20111216
  Receipt Date: 20111202
  Transmission Date: 20120403
  Serious: Yes (Hospitalization, Other)
  Sender: FDA-Public Use
  Company Number: PHHY2011TW78039

PATIENT
  Sex: Male
  Weight: 76 kg

DRUGS (7)
  1. AFINITOR [Suspect]
     Indication: METASTATIC RENAL CELL CARCINOMA
     Dosage: 10 MG, QD
     Route: 048
     Dates: start: 20110608, end: 20110622
  2. MICROX [Concomitant]
     Indication: BLOOD PRESSURE
     Dosage: 0.5 MG, BID
     Route: 048
     Dates: start: 20110606
  3. FUROSEMIDE [Concomitant]
     Indication: POLYURIA
     Dosage: 40 MG, PER DAY
     Route: 048
     Dates: start: 20110606
  4. ROSES [Concomitant]
     Indication: POLYURIA
     Dosage: 40 MG, DAILY
  5. TRAMADOL HYDROCHLORIDE [Concomitant]
     Indication: PAIN
     Dosage: 50 MG, TID
     Route: 048
     Dates: start: 20110101
  6. AFINITOR [Suspect]
     Dosage: 10 MG, PER DAY
     Route: 048
     Dates: start: 20110719, end: 20110727
  7. NORVASC [Concomitant]
     Indication: BLOOD PRESSURE
     Dosage: 5 MG, BID
     Route: 048
     Dates: start: 20110101

REACTIONS (13)
  - URINE OUTPUT DECREASED [None]
  - PERICARDIAL EFFUSION [None]
  - RENAL FAILURE ACUTE [None]
  - PROTEIN TOTAL DECREASED [None]
  - DRUG INEFFECTIVE [None]
  - GENERALISED OEDEMA [None]
  - BLOOD UREA INCREASED [None]
  - BLOOD CREATININE INCREASED [None]
  - ASCITES [None]
  - PLEURAL EFFUSION [None]
  - BLOOD CALCIUM DECREASED [None]
  - HAEMOLYSIS [None]
  - BLOOD SODIUM DECREASED [None]
